FAERS Safety Report 6678276-X (Version None)
Quarter: 2010Q2

REPORT INFORMATION
  Report Type: 
  Country: None (occurrence: None)
  Receive Date: 20100412
  Receipt Date: 20100407
  Transmission Date: 20101027
  Serious: Yes (Life-Threatening)
  Sender: FDA-Public Use
  Company Number: DE-BRISTOL-MYERS SQUIBB COMPANY-15052285

PATIENT
  Age: 66 Year
  Sex: Male

DRUGS (10)
  1. PACLITAXEL [Suspect]
     Indication: NON-SMALL CELL LUNG CANCER
     Route: 042
     Dates: start: 20100330
  2. PANTOPRAZOLE SODIUM [Concomitant]
     Indication: PROPHYLAXIS AGAINST GASTROINTESTINAL ULCER
     Route: 048
     Dates: start: 20100311
  3. ENOXAPARIN SODIUM [Concomitant]
     Indication: THROMBOSIS PROPHYLAXIS
     Route: 058
     Dates: start: 20100311
  4. AQUAPHOR [Concomitant]
     Indication: OEDEMA
     Route: 048
     Dates: start: 20100311
  5. SPIRIVA [Concomitant]
     Indication: CHRONIC OBSTRUCTIVE PULMONARY DISEASE
     Route: 048
     Dates: start: 20100311
  6. DIPYRONE TAB [Concomitant]
     Indication: PAIN
     Dosage: 1DF=120GTT[30GTT 4IN1DY]
     Route: 048
     Dates: start: 20100311
  7. PASPERTIN [Concomitant]
     Indication: PROPHYLAXIS OF NAUSEA AND VOMITING
     Dosage: 1DF=20GTT
     Route: 048
     Dates: start: 20100311
  8. DURAGESIC-100 [Concomitant]
     Indication: PAIN
     Route: 062
     Dates: start: 20100312
  9. CITALOPRAM HYDROBROMIDE [Concomitant]
     Indication: PROPHYLAXIS
     Route: 048
     Dates: start: 20100311
  10. MORPHINE [Concomitant]
     Indication: PAIN
     Route: 058
     Dates: start: 20100312

REACTIONS (1)
  - RENAL FAILURE ACUTE [None]
